FAERS Safety Report 10896478 (Version 1)
Quarter: 2015Q1

REPORT INFORMATION
  Report Type: Spontaneous
  Country: US (occurrence: None)
  Receive Date: 20150302
  Receipt Date: 20150302
  Transmission Date: 20150721
  Serious: Yes (Death)
  Sender: FDA-Public Use
  Company Number: None

PATIENT
  Age: 69 Year
  Sex: Female
  Weight: 63.5 kg

DRUGS (6)
  1. CENTRUM VITAMINS [Concomitant]
  2. LIPITOR [Concomitant]
     Active Substance: ATORVASTATIN CALCIUM
  3. WARFARIN 5 MG TARO [Suspect]
     Active Substance: WARFARIN
     Indication: THROMBOSIS PROPHYLAXIS
     Dosage: AS DIRECTED
     Route: 048
  4. GLEEVEC [Suspect]
     Active Substance: IMATINIB MESYLATE
     Indication: CHRONIC MYELOID LEUKAEMIA
     Dosage: 1 1/2 PILLS, TAKEN BY MOULTH
     Route: 048
  5. WARFARIN [Concomitant]
     Active Substance: WARFARIN
  6. GLEEVEC [Concomitant]
     Active Substance: IMATINIB MESYLATE

REACTIONS (3)
  - Drug interaction [None]
  - Cerebrovascular accident [None]
  - Subdural haematoma [None]

NARRATIVE: CASE EVENT DATE: 20150210
